FAERS Safety Report 22080481 (Version 1)
Quarter: 2023Q1

REPORT INFORMATION
  Report Type: Spontaneous
  Country: GB (occurrence: None)
  Receive Date: 20230307
  Receipt Date: 20230307
  Transmission Date: 20230417
  Serious: No
  Sender: FDA-Public Use
  Company Number: None

PATIENT
  Age: 73 Year
  Sex: Female
  Weight: 76.23 kg

DRUGS (4)
  1. OMNISCAN [Suspect]
     Active Substance: GADODIAMIDE
     Indication: Magnetic resonance imaging
     Dates: start: 20230302, end: 20230302
  2. Salbutomol [Concomitant]
  3. Lorotadine [Concomitant]
  4. Occasional Paracetemol [Concomitant]

REACTIONS (7)
  - Malaise [None]
  - Abdominal distension [None]
  - Insomnia [None]
  - Diarrhoea [None]
  - Dizziness [None]
  - Nausea [None]
  - Contrast media reaction [None]

NARRATIVE: CASE EVENT DATE: 20230307
